FAERS Safety Report 18244428 (Version 2)
Quarter: 2020Q4

REPORT INFORMATION
  Report Type: Other
  Country: FR (occurrence: FR)
  Receive Date: 20200909
  Receipt Date: 20201112
  Transmission Date: 20210113
  Serious: Yes (Death, Other)
  Sender: FDA-Public Use
  Company Number: FR-DENTSPLY-2020SCDP000275

PATIENT
  Age: 61 Year
  Sex: Female
  Weight: 110 kg

DRUGS (14)
  1. EPHEDRINE. [Suspect]
     Active Substance: EPHEDRINE
     Indication: TUMOUR EXCISION
     Dosage: 18 MICROGRAM
     Route: 040
     Dates: start: 20200403, end: 20200403
  2. PERFALGAN [Suspect]
     Active Substance: ACETAMINOPHEN
     Indication: PAIN
     Dosage: UNK
     Route: 042
     Dates: start: 20200403, end: 20200403
  3. FLAGYL [METRONIDAZOLE BENZOATE] [Suspect]
     Active Substance: METRONIDAZOLE BENZOATE
     Indication: PROPHYLAXIS
     Dosage: UNK
     Route: 042
     Dates: start: 20200403, end: 20200403
  4. NAROPEINE [Suspect]
     Active Substance: ROPIVACAINE HYDROCHLORIDE
     Indication: PAIN PROPHYLAXIS
     Dosage: 95 MILLIGRAM, TOTAL
     Route: 050
     Dates: start: 20200403, end: 20200403
  5. SUFENTA [Suspect]
     Active Substance: SUFENTANIL CITRATE
     Indication: TUMOUR EXCISION
     Dosage: 155 MICROGRAM
     Route: 040
     Dates: start: 20200403, end: 20200403
  6. XYLOCAINE WITH ADRENALINE (EPINEPHRINE) [Suspect]
     Active Substance: EPINEPHRINE BITARTRATE\LIDOCAINE HYDROCHLORIDE
     Indication: TUMOUR EXCISION
     Dosage: 65 MILLIGRAM, TOTAL
     Route: 040
     Dates: start: 20200403, end: 20200403
  7. DIPRIVAN [Suspect]
     Active Substance: PROPOFOL
     Indication: TUMOUR EXCISION
     Dosage: 340 MILLIGRAM, TOTAL
     Route: 040
     Dates: start: 20200403, end: 20200403
  8. ROCEPHINE [Suspect]
     Active Substance: CEFTRIAXONE SODIUM
     Indication: PROPHYLAXIS
     Dosage: UNK
     Route: 042
     Dates: start: 20200403, end: 20200403
  9. BRIDION [Suspect]
     Active Substance: SUGAMMADEX
     Indication: NEUROMUSCULAR BLOCKADE REVERSAL
     Dosage: 200 MILLIGRAM, TOTAL
     Route: 040
     Dates: start: 20200403, end: 20200403
  10. KETAMINE [Suspect]
     Active Substance: KETAMINE
     Indication: TUMOUR EXCISION
     Dosage: 45 MILLIGRAM, TOTAL
     Route: 040
     Dates: start: 20200403, end: 20200403
  11. DEXAMETHASONE. [Suspect]
     Active Substance: DEXAMETHASONE
     Indication: TUMOUR EXCISION
     Dosage: 8 MILLIGRAM, TOTAL
     Route: 040
     Dates: start: 20200403, end: 20200403
  12. ACUPAN [Suspect]
     Active Substance: NEFOPAM HYDROCHLORIDE
     Indication: PAIN
     Dosage: 20 MILLIGRAM, ACUPAN, SOLUTION INJECTABLE
     Route: 042
     Dates: start: 20200403, end: 20200403
  13. NEOSYNEPHRINE [Suspect]
     Active Substance: PHENYLEPHRINE HYDROCHLORIDE
     Indication: TUMOUR EXCISION
     Dosage: 1400 MICROGRAM, TOTAL
     Route: 040
     Dates: start: 20200403, end: 20200403
  14. NOREPINEPHRINE. [Suspect]
     Active Substance: NOREPINEPHRINE
     Indication: TUMOUR EXCISION
     Dosage: UNK
     Route: 042
     Dates: start: 20200403, end: 20200403

REACTIONS (1)
  - Cardio-respiratory arrest [Fatal]

NARRATIVE: CASE EVENT DATE: 20200403
